FAERS Safety Report 17394951 (Version 4)
Quarter: 2020Q1

REPORT INFORMATION
  Report Type: Spontaneous
  Country: PT (occurrence: PT)
  Receive Date: 20200210
  Receipt Date: 20200323
  Transmission Date: 20200409
  Serious: Yes (Hospitalization, Other)
  Sender: FDA-Public Use
  Company Number: PT-AUROBINDO-AUR-APL-2020-005305

PATIENT
  Age: 72 Year
  Sex: Female

DRUGS (7)
  1. BOSENTAN. [Suspect]
     Active Substance: BOSENTAN
     Indication: PULMONARY ARTERIAL HYPERTENSION
     Dosage: 62.5 MILLIGRAM, TWO TIMES A DAY
     Route: 048
  2. SILDENAFIL. [Suspect]
     Active Substance: SILDENAFIL
     Dosage: 25 MILLIGRAM, ONCE A DAY
     Route: 065
  3. SILDENAFIL. [Suspect]
     Active Substance: SILDENAFIL
     Dosage: 50 MILLIGRAM, 3 TIMES A DAY
     Route: 065
  4. SILDENAFIL. [Suspect]
     Active Substance: SILDENAFIL
     Indication: PULMONARY ARTERIAL HYPERTENSION
     Dosage: 25 MILLIGRAM, 3 TIMES A DAY
     Route: 065
  5. SILDENAFIL. [Suspect]
     Active Substance: SILDENAFIL
     Dosage: 50 MILLIGRAM, ONCE A DAY
     Route: 065
  6. BOSENTAN. [Suspect]
     Active Substance: BOSENTAN
     Dosage: 62.5 MILLIGRAM, ONCE A DAY
     Route: 065
  7. SILDENAFIL. [Suspect]
     Active Substance: SILDENAFIL
     Dosage: 25 MILLIGRAM, 3 TIMES A DAY
     Route: 065

REACTIONS (13)
  - Fatigue [Recovering/Resolving]
  - Hilar lymphadenopathy [Unknown]
  - Pulmonary oedema [Recovering/Resolving]
  - Dyspnoea [Recovering/Resolving]
  - Lymphadenopathy mediastinal [Unknown]
  - Hypoxia [Recovering/Resolving]
  - Acute pulmonary oedema [Recovering/Resolving]
  - Pulmonary veno-occlusive disease [Recovering/Resolving]
  - Lung opacity [Unknown]
  - Orthopnoea [Recovering/Resolving]
  - Pleuritic pain [Recovering/Resolving]
  - Cardiac septal hypertrophy [Unknown]
  - Pleural effusion [Recovered/Resolved]
